FAERS Safety Report 5285287-8 (Version None)
Quarter: 2007Q2

REPORT INFORMATION
  Report Type: 
  Country: None (occurrence: None)
  Receive Date: 20070403
  Receipt Date: 20070330
  Transmission Date: 20071010
  Serious: Yes (Hospitalization)
  Sender: FDA-Public Use
  Company Number: JP-BOEHRINGER INGELHEIM PHARMACEUTICALS, INC.-2007-BP-03731YA

PATIENT
  Age: 80 Year
  Sex: Male

DRUGS (9)
  1. HARNAL (TAMSULOSIN) ORODISPERSABLE CR [Suspect]
     Route: 048
  2. CIBENOL [Suspect]
     Route: 048
     Dates: start: 20070101, end: 20070316
  3. THEO-DUR [Concomitant]
  4. TICLOPIDINE HCL [Concomitant]
  5. FAMOTIDIN [Concomitant]
  6. ASPIRIN [Concomitant]
  7. MUCOSOLVAN [Concomitant]
  8. LASIX [Concomitant]
  9. ENALAPRIL MALEATE [Concomitant]

REACTIONS (2)
  - HYPOGLYCAEMIA [None]
  - POST GASTRIC SURGERY SYNDROME [None]
